FAERS Safety Report 10017625 (Version 2)
Quarter: 2014Q2

REPORT INFORMATION
  Report Type: Spontaneous
  Country: US (occurrence: US)
  Receive Date: 20140318
  Receipt Date: 20140411
  Transmission Date: 20141212
  Serious: No
  Sender: FDA-Public Use
  Company Number: US-BAYER-2014-036275

PATIENT
  Age: 78 Year
  Sex: Female
  Weight: 47.17 kg

DRUGS (3)
  1. ALEVE GELCAPS [Suspect]
     Dosage: 1 DF, PRN
     Route: 048
     Dates: start: 201401
  2. CITRACAL [Concomitant]
     Dosage: UNK
  3. MOBIC [Concomitant]
     Dosage: UNK
     Dates: start: 201401, end: 201401

REACTIONS (2)
  - Intentional product misuse [Not Recovered/Not Resolved]
  - Abdominal pain upper [Recovered/Resolved]
